FAERS Safety Report 4441025-X (Version None)
Quarter: 2004Q3

REPORT INFORMATION
  Report Type: 
  Country: None (occurrence: None)
  Receive Date: 20040902
  Receipt Date: 20040902
  Transmission Date: 20050211
  Serious: Yes (Hospitalization)
  Sender: FDA-Public Use
  Company Number: None

PATIENT
  Age: 81 Year
  Sex: Male
  Weight: 75 kg

DRUGS (2)
  1. PHENYTOIN [Suspect]
     Indication: CONVULSION
     Dosage: 100 MG TID ORAL
     Route: 048
     Dates: start: 20040624, end: 20040630
  2. PHENOBARBITAL TAB [Concomitant]

REACTIONS (2)
  - RASH ERYTHEMATOUS [None]
  - RHABDOMYOLYSIS [None]
